FAERS Safety Report 18269719 (Version 6)
Quarter: 2023Q4

REPORT INFORMATION
  Report Type: Spontaneous
  Country: CA (occurrence: CA)
  Receive Date: 20200915
  Receipt Date: 20231130
  Transmission Date: 20240109
  Serious: Yes (Hospitalization, Other)
  Sender: FDA-Public Use
  Company Number: CA-BAUSCH-BL-2020-025906

PATIENT
  Age: 48 Year
  Sex: Female
  Weight: 106 kg

DRUGS (82)
  1. LORAZEPAM [Suspect]
     Active Substance: LORAZEPAM
     Indication: Tardive dyskinesia
     Dosage: NOT SPECIFIED
     Route: 048
  2. LORAZEPAM [Suspect]
     Active Substance: LORAZEPAM
     Route: 048
  3. LORAZEPAM [Suspect]
     Active Substance: LORAZEPAM
     Route: 048
  4. LORAZEPAM [Suspect]
     Active Substance: LORAZEPAM
     Route: 048
  5. DEXAMETHASONE [Suspect]
     Active Substance: DEXAMETHASONE
     Indication: Supportive care
     Route: 048
  6. DEXAMETHASONE [Suspect]
     Active Substance: DEXAMETHASONE
     Indication: Supportive care
     Route: 048
  7. DEXAMETHASONE [Suspect]
     Active Substance: DEXAMETHASONE
     Route: 048
  8. DOXORUBICIN [Suspect]
     Active Substance: DOXORUBICIN
     Indication: Breast cancer
     Dosage: SOLUTION?INTRAVENOUS
     Route: 042
  9. DOXORUBICIN [Suspect]
     Active Substance: DOXORUBICIN
     Route: 042
  10. DOXORUBICIN [Suspect]
     Active Substance: DOXORUBICIN
     Route: 042
  11. DOXORUBICIN [Suspect]
     Active Substance: DOXORUBICIN
     Route: 042
  12. ENOXAPARIN [Suspect]
     Active Substance: ENOXAPARIN
     Indication: Tardive dyskinesia
     Route: 058
  13. ENOXAPARIN [Suspect]
     Active Substance: ENOXAPARIN
     Route: 058
  14. FILGRASTIM [Suspect]
     Active Substance: FILGRASTIM
     Indication: Supportive care
     Route: 065
  15. FILGRASTIM [Suspect]
     Active Substance: FILGRASTIM
     Route: 065
  16. FILGRASTIM [Suspect]
     Active Substance: FILGRASTIM
     Route: 048
  17. LEVOFLOXACIN [Suspect]
     Active Substance: LEVOFLOXACIN
     Indication: Tardive dyskinesia
     Route: 048
  18. LEVOFLOXACIN [Suspect]
     Active Substance: LEVOFLOXACIN
     Route: 048
  19. PACLITAXEL [Suspect]
     Active Substance: PACLITAXEL
     Indication: Breast cancer female
     Dosage: LIQUID INTRAVENOUS
     Route: 042
  20. PACLITAXEL [Suspect]
     Active Substance: PACLITAXEL
     Indication: Supportive care
     Dosage: LIQUID INTRAVENOUS
     Route: 042
  21. PACLITAXEL [Suspect]
     Active Substance: PACLITAXEL
     Dosage: LIQUID INTRAVENOUS
     Route: 042
  22. PACLITAXEL [Suspect]
     Active Substance: PACLITAXEL
     Dosage: SOLUTION FOR?INJECTION/INFUSION
     Route: 042
  23. PACLITAXEL [Suspect]
     Active Substance: PACLITAXEL
     Dosage: SOLUTION FOR?INJECTION/INFUSION
     Route: 042
  24. PACLITAXEL [Suspect]
     Active Substance: PACLITAXEL
     Dosage: SOLUTION FOR?INJECTION/INFUSION
     Route: 042
  25. PACLITAXEL [Suspect]
     Active Substance: PACLITAXEL
     Dosage: SOLUTION FOR?INJECTION/INFUSION
     Route: 042
  26. PACLITAXEL [Suspect]
     Active Substance: PACLITAXEL
     Dosage: SOLUTION FOR?INJECTION/INFUSION
     Route: 042
  27. PACLITAXEL [Suspect]
     Active Substance: PACLITAXEL
     Dosage: SOLUTION FOR?INJECTION/INFUSION
     Route: 042
  28. PEGFILGRASTIM [Suspect]
     Active Substance: PEGFILGRASTIM
     Indication: Product used for unknown indication
     Route: 058
  29. PEGFILGRASTIM [Suspect]
     Active Substance: PEGFILGRASTIM
     Indication: Supportive care
  30. CYCLOPHOSPHAMIDE [Suspect]
     Active Substance: CYCLOPHOSPHAMIDE
     Indication: Breast cancer female
     Route: 042
  31. CYCLOPHOSPHAMIDE [Suspect]
     Active Substance: CYCLOPHOSPHAMIDE
     Indication: Tardive dyskinesia
     Route: 065
  32. CYCLOPHOSPHAMIDE [Suspect]
     Active Substance: CYCLOPHOSPHAMIDE
     Route: 042
  33. CYCLOPHOSPHAMIDE [Suspect]
     Active Substance: CYCLOPHOSPHAMIDE
     Route: 042
  34. CYCLOPHOSPHAMIDE [Suspect]
     Active Substance: CYCLOPHOSPHAMIDE
     Route: 042
  35. RANITIDINE HYDROCHLORIDE [Suspect]
     Active Substance: RANITIDINE HYDROCHLORIDE
     Indication: Tardive dyskinesia
     Route: 048
  36. RANITIDINE HYDROCHLORIDE [Suspect]
     Active Substance: RANITIDINE HYDROCHLORIDE
     Route: 048
  37. RANITIDINE HYDROCHLORIDE [Suspect]
     Active Substance: RANITIDINE HYDROCHLORIDE
     Route: 048
  38. RANITIDINE HYDROCHLORIDE [Suspect]
     Active Substance: RANITIDINE HYDROCHLORIDE
     Route: 048
  39. TRASTUZUMAB [Suspect]
     Active Substance: TRASTUZUMAB
     Indication: Tardive dyskinesia
     Route: 065
  40. TRASTUZUMAB [Suspect]
     Active Substance: TRASTUZUMAB
     Route: 065
  41. TRASTUZUMAB [Suspect]
     Active Substance: TRASTUZUMAB
     Route: 048
  42. TRASTUZUMAB [Suspect]
     Active Substance: TRASTUZUMAB
     Route: 065
  43. TRASTUZUMAB [Suspect]
     Active Substance: TRASTUZUMAB
     Route: 065
  44. TRASTUZUMAB [Suspect]
     Active Substance: TRASTUZUMAB
     Route: 065
  45. TRASTUZUMAB [Suspect]
     Active Substance: TRASTUZUMAB
     Route: 065
  46. TYLENOL WITH CODEINE [Suspect]
     Active Substance: ACETAMINOPHEN\CODEINE PHOSPHATE
     Indication: Tardive dyskinesia
     Route: 065
  47. APREPITANT [Suspect]
     Active Substance: APREPITANT
     Indication: Supportive care
     Route: 048
  48. APREPITANT [Suspect]
     Active Substance: APREPITANT
     Route: 048
  49. DOXORUBICIN [Suspect]
     Active Substance: DOXORUBICIN
     Indication: Breast cancer
     Dosage: INTRAVENOUS
     Route: 042
  50. BETAMETHASONE [Suspect]
     Active Substance: BETAMETHASONE\BETAMETHASONE DIPROPIONATE
     Indication: Tardive dyskinesia
     Route: 048
  51. BETAMETHASONE [Suspect]
     Active Substance: BETAMETHASONE\BETAMETHASONE DIPROPIONATE
     Route: 065
  52. BETAMETHASONE [Suspect]
     Active Substance: BETAMETHASONE\BETAMETHASONE DIPROPIONATE
     Route: 048
  53. EMEND [Suspect]
     Active Substance: APREPITANT
     Indication: Supportive care
     Route: 048
  54. EMEND [Suspect]
     Active Substance: APREPITANT
     Route: 048
  55. EMEND [Suspect]
     Active Substance: APREPITANT
     Route: 048
  56. EMEND [Suspect]
     Active Substance: APREPITANT
     Route: 048
  57. EMEND [Suspect]
     Active Substance: APREPITANT
     Route: 048
  58. EMEND [Suspect]
     Active Substance: APREPITANT
     Route: 048
  59. METOCLOPRAMIDE [Suspect]
     Active Substance: METOCLOPRAMIDE
     Indication: Tardive dyskinesia
     Route: 048
  60. METOCLOPRAMIDE [Suspect]
     Active Substance: METOCLOPRAMIDE
     Route: 048
  61. ACETAMINOPHEN\CODEINE PHOSPHATE [Suspect]
     Active Substance: ACETAMINOPHEN\CODEINE PHOSPHATE
     Indication: Tardive dyskinesia
     Route: 065
  62. ACETAMINOPHEN\CODEINE PHOSPHATE [Suspect]
     Active Substance: ACETAMINOPHEN\CODEINE PHOSPHATE
     Route: 065
  63. ACETAMINOPHEN\CODEINE PHOSPHATE [Suspect]
     Active Substance: ACETAMINOPHEN\CODEINE PHOSPHATE
     Dosage: ELIXIR
     Route: 065
  64. ACETAMINOPHEN\CODEINE PHOSPHATE [Suspect]
     Active Substance: ACETAMINOPHEN\CODEINE PHOSPHATE
     Route: 065
  65. NEULASTA [Suspect]
     Active Substance: PEGFILGRASTIM
     Indication: Supportive care
     Route: 058
  66. NEULASTA [Suspect]
     Active Substance: PEGFILGRASTIM
     Route: 058
  67. NEULASTA [Suspect]
     Active Substance: PEGFILGRASTIM
     Route: 058
  68. NEULASTA [Suspect]
     Active Substance: PEGFILGRASTIM
     Dosage: SOLUTION?SUBCUTANEOUS
     Route: 058
  69. NEUPOGEN [Suspect]
     Active Substance: FILGRASTIM
     Indication: Supportive care
     Dosage: SOLUTION INTRAVENOUS
     Route: 048
  70. NEUPOGEN [Suspect]
     Active Substance: FILGRASTIM
     Dosage: SOLUTION INTRAVENOUS
     Route: 065
  71. NEUPOGEN [Suspect]
     Active Substance: FILGRASTIM
     Dosage: SOLUTION INTRAVENOUS
     Route: 065
  72. NEUPOGEN [Suspect]
     Active Substance: FILGRASTIM
     Route: 048
  73. NEUPOGEN [Suspect]
     Active Substance: FILGRASTIM
     Route: 048
  74. NEUPOGEN [Suspect]
     Active Substance: FILGRASTIM
     Route: 065
  75. ONDANSETRON [Suspect]
     Active Substance: ONDANSETRON
     Indication: Supportive care
     Route: 048
  76. ONDANSETRON [Suspect]
     Active Substance: ONDANSETRON
     Route: 048
  77. ONDANSETRON [Suspect]
     Active Substance: ONDANSETRON
     Route: 065
  78. ONDANSETRON [Suspect]
     Active Substance: ONDANSETRON
     Route: 048
  79. ONDANSETRON [Suspect]
     Active Substance: ONDANSETRON
     Route: 048
  80. ONDANSETRON [Suspect]
     Active Substance: ONDANSETRON
     Route: 048
  81. ONDANSETRON [Suspect]
     Active Substance: ONDANSETRON
     Route: 048
  82. ONDANSETRON [Suspect]
     Active Substance: ONDANSETRON
     Route: 048

REACTIONS (12)
  - Atelectasis [Recovered/Resolved]
  - Cough [Recovered/Resolved]
  - Gastrointestinal disorder [Recovered/Resolved]
  - Hypoxia [Recovered/Resolved]
  - Computerised tomogram thorax abnormal [Recovered/Resolved]
  - Dyspnoea [Recovered/Resolved]
  - Computerised tomogram thorax [Recovered/Resolved]
  - Pyrexia [Recovered/Resolved]
  - Fatigue [Recovered/Resolved]
  - Rash [Recovered/Resolved]
  - Nausea [Recovered/Resolved]
  - Off label use [Recovered/Resolved]
